FAERS Safety Report 14156216 (Version 1)
Quarter: 2017Q4

REPORT INFORMATION
  Report Type: Spontaneous
  Country: AU (occurrence: AU)
  Receive Date: 20171103
  Receipt Date: 20171103
  Transmission Date: 20180321
  Serious: Yes (Disabling, Other)
  Sender: FDA-Public Use
  Company Number: AU-BRISTOL-MYERS SQUIBB COMPANY-BMS-2017-096860

PATIENT
  Age: 8 Decade
  Sex: Male

DRUGS (1)
  1. NIVOLUMAB [Suspect]
     Active Substance: NIVOLUMAB
     Indication: LUNG ADENOCARCINOMA
     Dosage: UNK
     Route: 065
     Dates: start: 201609, end: 201709

REACTIONS (2)
  - Blindness [Unknown]
  - Headache [Unknown]
